FAERS Safety Report 8171778-9 (Version None)
Quarter: 2012Q1

REPORT INFORMATION
  Report Type: 
  Country: None (occurrence: None)
  Receive Date: 20120228
  Receipt Date: 20120223
  Transmission Date: 20120608
  Serious: Yes (Death)
  Sender: FDA-Public Use
  Company Number: US-GLAXOSMITHKLINE-A0967200A

PATIENT
  Age: 39 Year
  Sex: Male

DRUGS (10)
  1. COLACE [Concomitant]
  2. BACTRIM [Concomitant]
  3. VITAMIN D [Concomitant]
  4. TARCEVA [Concomitant]
  5. DECADRON [Concomitant]
  6. VOTRIENT [Suspect]
     Indication: PRODUCT USED FOR UNKNOWN INDICATION
     Dosage: 400MG PER DAY
     Route: 048
  7. AFINITOR [Concomitant]
  8. DASATINIB [Concomitant]
  9. DOXYCYCLINE [Concomitant]
  10. PRILOSEC [Concomitant]

REACTIONS (1)
  - DEATH [None]
